FAERS Safety Report 11869005 (Version 2)
Quarter: 2016Q1

REPORT INFORMATION
  Report Type: Report from Study
  Country: JP (occurrence: JP)
  Receive Date: 20151225
  Receipt Date: 20160205
  Transmission Date: 20160526
  Serious: Yes (Hospitalization, Other)
  Sender: FDA-Public Use
  Company Number: JP-BRISTOL-MYERS SQUIBB COMPANY-BMS-2015-090189

PATIENT
  Age: 77 Year
  Sex: Male
  Weight: 78 kg

DRUGS (5)
  1. RISUMIC [Concomitant]
     Active Substance: AMEZINIUM METILSULFATE
     Indication: ORTHOSTATIC HYPOTENSION
     Dosage: 1 TAB, UNK
     Route: 048
     Dates: end: 20141117
  2. APIXABAN [Suspect]
     Active Substance: APIXABAN
     Indication: CEREBROVASCULAR ACCIDENT PROPHYLAXIS
     Dosage: 5 MG, BID
     Route: 048
     Dates: start: 20140304, end: 20141117
  3. FEBURIC [Concomitant]
     Active Substance: FEBUXOSTAT
     Indication: HYPERURICAEMIA
     Dosage: 20 MG, UNK
     Route: 048
     Dates: end: 20141117
  4. ALDACTONE-A [Concomitant]
     Active Substance: SPIRONOLACTONE
     Indication: CARDIAC FAILURE
     Dosage: 1 TAB, UNK
     Route: 048
     Dates: end: 20141117
  5. MEVALOTIN [Concomitant]
     Active Substance: PRAVASTATIN SODIUM
     Indication: HYPERLIPIDAEMIA
     Dosage: 10 MG, UNK
     Route: 048
     Dates: end: 20141117

REACTIONS (2)
  - Pericardial drainage [Unknown]
  - Cardiac tamponade [Recovered/Resolved]

NARRATIVE: CASE EVENT DATE: 20140402
